FAERS Safety Report 16481956 (Version 1)
Quarter: 2019Q2

REPORT INFORMATION
  Report Type: Spontaneous
  Country: DK (occurrence: DK)
  Receive Date: 20190627
  Receipt Date: 20190627
  Transmission Date: 20190711
  Serious: Yes (Hospitalization)
  Sender: FDA-Public Use
  Company Number: DK-ROCHE-2344032

PATIENT
  Age: 64 Year
  Sex: Female

DRUGS (18)
  1. ZOMETA [Suspect]
     Active Substance: ZOLEDRONIC ACID
     Indication: PRODUCT USED FOR UNKNOWN INDICATION
     Route: 042
     Dates: start: 2013, end: 20140123
  2. ENALAPRIL [Concomitant]
     Active Substance: ENALAPRIL
     Indication: HYPERTENSION
     Route: 048
     Dates: start: 20161115
  3. OXYCODONE [Concomitant]
     Active Substance: OXYCODONE
     Indication: PAIN
     Route: 048
     Dates: start: 20160401, end: 20180717
  4. TRAMADOL. [Concomitant]
     Active Substance: TRAMADOL
     Indication: PAIN
     Route: 048
  5. WARFARIN [Concomitant]
     Active Substance: WARFARIN
     Indication: THROMBOSIS PROPHYLAXIS
     Route: 048
  6. BONDRONAT [IBANDRONATE SODIUM] [Suspect]
     Active Substance: IBANDRONATE SODIUM
     Indication: PRODUCT USED FOR UNKNOWN INDICATION
     Route: 042
     Dates: start: 20120510, end: 2013
  7. BONDRONAT [IBANDRONATE SODIUM] [Suspect]
     Active Substance: IBANDRONATE SODIUM
     Indication: PRODUCT USED FOR UNKNOWN INDICATION
     Route: 048
     Dates: start: 20140123, end: 20150813
  8. CLOBETASOL [Concomitant]
     Active Substance: CLOBETASOL
     Indication: SKIN DISORDER
     Route: 058
     Dates: start: 20170613, end: 20180717
  9. XGEVA [Suspect]
     Active Substance: DENOSUMAB
     Indication: PRODUCT USED FOR UNKNOWN INDICATION
     Route: 058
     Dates: start: 20160125, end: 201701
  10. PREDNISOLONE. [Concomitant]
     Active Substance: PREDNISOLONE
     Indication: HORMONE SUPPRESSION THERAPY
     Route: 048
  11. ZOMETA [Suspect]
     Active Substance: ZOLEDRONIC ACID
     Route: 042
     Dates: start: 20150813, end: 20151214
  12. DALTEPARIN [Concomitant]
     Active Substance: DALTEPARIN
     Indication: THROMBOSIS PROPHYLAXIS
     Route: 058
     Dates: start: 20180719
  13. METFORMIN [Concomitant]
     Active Substance: METFORMIN HYDROCHLORIDE
     Indication: DIABETES MELLITUS
     Route: 048
  14. FUROSEMIDE. [Concomitant]
     Active Substance: FUROSEMIDE
     Indication: DIURETIC THERAPY
     Route: 048
     Dates: start: 20160919
  15. GLIMEPIRIDE. [Concomitant]
     Active Substance: GLIMEPIRIDE
     Indication: DIABETES MELLITUS
     Route: 048
  16. CILODEX [Concomitant]
     Active Substance: CIPROFLOXACIN\DEXAMETHASONE
     Indication: EAR INFECTION
     Dosage: STYRKE: 3 + 1 MG/ML
     Route: 001
     Dates: start: 20171204, end: 20180717
  17. HYDROCORTISONE;OXYTETRACYCLINE;POLYMYXIN B [Concomitant]
     Indication: EAR INFECTION
     Dosage: STYRKE: 15+5+1MG/ML
     Route: 001
     Dates: start: 20170829
  18. METOCLOPRAMIDE. [Concomitant]
     Active Substance: METOCLOPRAMIDE
     Indication: NAUSEA
     Route: 048
     Dates: start: 20161121

REACTIONS (5)
  - Exposed bone in jaw [Recovered/Resolved]
  - Pain [Recovered/Resolved]
  - Osteonecrosis of jaw [Recovered/Resolved]
  - Impaired healing [Recovered/Resolved]
  - Sequestrectomy [Unknown]

NARRATIVE: CASE EVENT DATE: 2016
